FAERS Safety Report 6938097-7 (Version None)
Quarter: 2010Q3

REPORT INFORMATION
  Report Type: 
  Country: None (occurrence: None)
  Receive Date: 20100817
  Receipt Date: 20100804
  Transmission Date: 20110219
  Serious: Yes (Disabling, Other)
  Sender: FDA-Public Use
  Company Number: 2010AP001667

PATIENT
  Age: 62 Year
  Sex: Female

DRUGS (8)
  1. RAMIPRIL [Suspect]
     Indication: RENAL FAILURE CHRONIC
     Dosage: 2.5 MG; PO
     Route: 048
     Dates: start: 20100628, end: 20100717
  2. FLECAINIDE ACETATE [Suspect]
     Indication: ATRIAL FIBRILLATION
     Dosage: 100 MG; BID; PO
     Route: 048
     Dates: start: 20050101
  3. ACETYSALICYLIC ACID [Concomitant]
  4. MACROGOL [Concomitant]
  5. POTASSIUM CHLORIDE [Concomitant]
  6. SODIUM BICARBONATE [Concomitant]
  7. SODIUM CHLORIDE [Concomitant]
  8. OMEPRAZOLE [Concomitant]

REACTIONS (9)
  - DEPRESSED MOOD [None]
  - DYSPNOEA [None]
  - HEADACHE [None]
  - HEART RATE DECREASED [None]
  - INSOMNIA [None]
  - LETHARGY [None]
  - MALAISE [None]
  - PALPITATIONS [None]
  - POTENTIATING DRUG INTERACTION [None]
